FAERS Safety Report 4365265-3 (Version None)
Quarter: 2004Q2

REPORT INFORMATION
  Report Type: 
  Country: None (occurrence: None)
  Receive Date: 20040521
  Receipt Date: 20040116
  Transmission Date: 20050107
  Serious: Yes (Hospitalization)
  Sender: FDA-Public Use
  Company Number: F01200400091

PATIENT
  Age: 67 Year
  Sex: Male

DRUGS (7)
  1. OXALIPLATIN - SOLUTION - 206 MG [Suspect]
     Indication: COLORECTAL CANCER METASTATIC
     Dosage: 206 MG Q3W
     Route: 042
     Dates: start: 20040106, end: 20040106
  2. CAPECITABINE - TABLET - 1650 MG [Suspect]
     Dosage: 1650 MG TWICE DAILY FROM D1 TO D14
     Route: 048
     Dates: start: 20040106
  3. MORPHINE SULFATE [Concomitant]
  4. SENNOSDIE (SENNA) [Concomitant]
  5. MULTI-VITAMINS [Concomitant]
  6. LACTULOSE [Concomitant]
  7. DOLOGESIC (ACETAMINOPHEN + PROPOXYPHENE NAPSYLATE) [Concomitant]

REACTIONS (12)
  - ANOREXIA [None]
  - ASTHENIA [None]
  - CONSTIPATION [None]
  - EYE SWELLING [None]
  - FACE INJURY [None]
  - FALL [None]
  - HEAD INJURY [None]
  - JOINT DISLOCATION [None]
  - MARKEDLY REDUCED DIETARY INTAKE [None]
  - SKIN LACERATION [None]
  - SUBDURAL HAEMATOMA [None]
  - VOMITING [None]
